FAERS Safety Report 4458503-X (Version None)
Quarter: 2004Q3

REPORT INFORMATION
  Report Type: 
  Country: None (occurrence: None)
  Receive Date: 20040922
  Receipt Date: 20040514
  Transmission Date: 20050211
  Serious: Yes (Hospitalization)
  Sender: FDA-Public Use
  Company Number: US-SHR-03-006299

PATIENT
  Age: 36 Year
  Sex: Female
  Weight: 59 kg

DRUGS (10)
  1. BETASERON [Suspect]
     Indication: MULTIPLE SCLEROSIS
     Dosage: SUBCUTANEOUS; 8MIU, EVERY 2D, SUBCUTANEOUS
     Route: 058
     Dates: start: 19960601, end: 20020427
  2. BETASERON [Suspect]
     Indication: MULTIPLE SCLEROSIS
     Dosage: SUBCUTANEOUS; 8MIU, EVERY 2D, SUBCUTANEOUS
     Route: 058
     Dates: start: 20020701, end: 20030320
  3. BETASERON [Suspect]
     Indication: MULTIPLE SCLEROSIS
     Dosage: SUBCUTANEOUS; 8MIU, EVERY 2D, SUBCUTANEOUS
     Route: 058
     Dates: start: 20030501
  4. NEXIUM [Concomitant]
  5. NEURONTIN [Concomitant]
  6. BUSPAR [Concomitant]
  7. IMITREX ^GLAXO^ (SUMATRIPTAN) [Concomitant]
  8. ALLEGRA-D (PSEUDOEPHEDRINE HYDROCHLORIDE, FEXOFENADINE HYDROCHLORIDE) [Concomitant]
  9. PROVIGIL [Concomitant]
  10. BACLOFEN [Concomitant]

REACTIONS (4)
  - INJECTION SITE ABSCESS [None]
  - INJECTION SITE CELLULITIS [None]
  - INJECTION SITE INFECTION [None]
  - INJECTION SITE IRRITATION [None]
